FAERS Safety Report 9706890 (Version 1)
Quarter: 2013Q4

REPORT INFORMATION
  Report Type: Spontaneous
  Country: BR (occurrence: BR)
  Receive Date: 20131125
  Receipt Date: 20131125
  Transmission Date: 20140711
  Serious: Yes (Other)
  Sender: FDA-Public Use
  Company Number: BR-JNJFOC-20131111753

PATIENT
  Age: 33 Year
  Sex: Female

DRUGS (3)
  1. EVRA [Suspect]
     Indication: CONTRACEPTION
     Route: 062
     Dates: start: 2011
  2. CITONEURIN [Concomitant]
     Indication: BACK PAIN
     Route: 065
  3. TRILAX [Concomitant]
     Indication: BACK PAIN
     Route: 065

REACTIONS (3)
  - Arthritis [Unknown]
  - Vaginal haemorrhage [Unknown]
  - Back pain [Unknown]
